FAERS Safety Report 9746281 (Version 1)
Quarter: 2013Q4

REPORT INFORMATION
  Report Type: Report from Study
  Country: TR (occurrence: TR)
  Receive Date: 20131211
  Receipt Date: 20131211
  Transmission Date: 20140711
  Serious: Yes (Other)
  Sender: FDA-Public Use
  Company Number: PHHY2013TR141569

PATIENT
  Sex: Female
  Weight: 15 kg

DRUGS (1)
  1. OMNITROPE [Suspect]
     Indication: GROWTH HORMONE DEFICIENCY
     Dosage: 0.6 MG, UNK
     Route: 058
     Dates: start: 20120714

REACTIONS (1)
  - Macrocephaly [Not Recovered/Not Resolved]
